FAERS Safety Report 8489884-8 (Version None)
Quarter: 2012Q3

REPORT INFORMATION
  Report Type: 
  Country: None (occurrence: None)
  Receive Date: 20120705
  Receipt Date: 20120627
  Transmission Date: 20120928
  Serious: Yes (Other)
  Sender: FDA-Public Use
  Company Number: PHHY2012IT055250

PATIENT
  Age: 58 Year
  Sex: Female
  Weight: 70 kg

DRUGS (2)
  1. RADIOTHERAPY [Concomitant]
     Dates: start: 20070701, end: 20070901
  2. ANASTROZOLE [Suspect]
     Dates: start: 20070701

REACTIONS (5)
  - ARTHRALGIA [None]
  - OSTEOPENIA [None]
  - FATIGUE [None]
  - JOINT STIFFNESS [None]
  - PAIN [None]
